FAERS Safety Report 18403527 (Version 1)
Quarter: 2020Q4

REPORT INFORMATION
  Report Type: Spontaneous
  Country: US (occurrence: US)
  Receive Date: 20201019
  Receipt Date: 20201019
  Transmission Date: 20210114
  Serious: Yes (Other)
  Sender: FDA-Public Use
  Company Number: None

PATIENT
  Age: 63 Year
  Sex: Female

DRUGS (1)
  1. SULFADIAZINE. [Suspect]
     Active Substance: SULFADIAZINE
     Indication: RHEUMATOID ARTHRITIS
     Route: 048
     Dates: start: 20200928, end: 20201019

REACTIONS (3)
  - Product dispensing error [None]
  - Wrong product administered [None]
  - Gastric disorder [None]

NARRATIVE: CASE EVENT DATE: 20201019
